FAERS Safety Report 12756425 (Version 1)
Quarter: 2016Q3

REPORT INFORMATION
  Report Type: Report from Study
  Country: DE (occurrence: DE)
  Receive Date: 20160916
  Receipt Date: 20160916
  Transmission Date: 20161109
  Serious: Yes (Hospitalization)
  Sender: FDA-Public Use
  Company Number: US-ASTRAZENECA-2016SE98522

PATIENT
  Age: 189 Day
  Sex: Male
  Weight: 1.1 kg

DRUGS (7)
  1. SYNAGIS [Suspect]
     Active Substance: PALIVIZUMAB
     Indication: PREMATURE BABY
     Dosage: 120 MG
     Route: 030
     Dates: start: 20100331, end: 20100331
  2. SYNAGIS [Suspect]
     Active Substance: PALIVIZUMAB
     Indication: PREMATURE BABY
     Dosage: 70 MG
     Route: 030
     Dates: start: 20091001, end: 20091001
  3. SYNAGIS [Suspect]
     Active Substance: PALIVIZUMAB
     Indication: PREMATURE BABY
     Dosage: 100 MG
     Route: 030
     Dates: start: 20091126, end: 20091126
  4. SYNAGIS [Suspect]
     Active Substance: PALIVIZUMAB
     Indication: PREMATURE BABY
     Dosage: 80 MG
     Route: 030
     Dates: start: 20091029, end: 20091029
  5. SYNAGIS [Suspect]
     Active Substance: PALIVIZUMAB
     Indication: PREMATURE BABY
     Dosage: 115 MG
     Route: 030
     Dates: start: 20100202, end: 20100202
  6. SYNAGIS [Suspect]
     Active Substance: PALIVIZUMAB
     Indication: PREMATURE BABY
     Dosage: 120 MG
     Route: 030
     Dates: start: 20100302, end: 20100302
  7. SYNAGIS [Suspect]
     Active Substance: PALIVIZUMAB
     Indication: PREMATURE BABY
     Dosage: 100 MG
     Route: 030
     Dates: start: 20091228, end: 20091228

REACTIONS (2)
  - Bronchitis [Recovered/Resolved]
  - Restlessness [Recovered/Resolved]

NARRATIVE: CASE EVENT DATE: 20091120
